FAERS Safety Report 25641634 (Version 1)
Quarter: 2025Q3

REPORT INFORMATION
  Report Type: Spontaneous
  Country: CA (occurrence: CA)
  Receive Date: 20250804
  Receipt Date: 20250804
  Transmission Date: 20251021
  Serious: Yes (Other)
  Sender: BRACCO
  Company Number: CA-BRACCO-2025CA05259

PATIENT
  Age: 79 Year
  Sex: Female

DRUGS (1)
  1. ISOVUE 370 [Suspect]
     Active Substance: IOPAMIDOL
     Route: 040

REACTIONS (2)
  - Malaise [Unknown]
  - Vomiting [Unknown]
